FAERS Safety Report 5868983-0 (Version None)
Quarter: 2008Q3

REPORT INFORMATION
  Report Type: 
  Country: None (occurrence: None)
  Receive Date: 20080902
  Receipt Date: 20080902
  Transmission Date: 20090109
  Serious: Yes (Hospitalization)
  Sender: FDA-Public Use
  Company Number: None

PATIENT
  Age: 37 Year
  Sex: Male
  Weight: 101.6 kg

DRUGS (1)
  1. HYDROCORTISONE [Suspect]
     Dosage: QS TID TOP
     Route: 061
     Dates: start: 20070822, end: 20071026

REACTIONS (2)
  - DERMATITIS ALLERGIC [None]
  - HEPATITIS [None]
